FAERS Safety Report 19462247 (Version 1)
Quarter: 2021Q2

REPORT INFORMATION
  Report Type: Report from Study
  Country: FR (occurrence: FR)
  Receive Date: 20210625
  Receipt Date: 20210625
  Transmission Date: 20210717
  Serious: Yes (Other)
  Sender: FDA-Public Use
  Company Number: FR-BRISTOL-MYERS SQUIBB COMPANY-BMS-2021-060026

PATIENT
  Age: 67 Year
  Sex: Male
  Weight: 80.8 kg

DRUGS (9)
  1. SMECTA [MONTMORILLONITE] [Concomitant]
     Indication: DIARRHOEA
     Route: 065
  2. IPILIMUMAB [Suspect]
     Active Substance: IPILIMUMAB
     Indication: MALIGNANT MELANOMA
     Dosage: 246 MILLIGRAM
     Route: 042
     Dates: start: 20210428, end: 20210609
  3. SMECTA [MONTMORILLONITE] [Concomitant]
     Indication: DIARRHOEA
  4. NIVOLUMAB [Suspect]
     Active Substance: NIVOLUMAB
     Indication: MALIGNANT MELANOMA
     Dosage: 82 MILLIGRAM
     Route: 042
     Dates: start: 20210428, end: 20210609
  5. TIORFAN [Concomitant]
     Active Substance: RACECADOTRIL
     Indication: DIARRHOEA
     Route: 065
  6. AERIUS [EBASTINE] [Concomitant]
     Active Substance: EBASTINE
     Indication: TOXIC SKIN ERUPTION
     Route: 065
  7. DIPROSONE [Concomitant]
     Active Substance: BETAMETHASONE DIPROPIONATE
     Indication: TOXIC SKIN ERUPTION
     Route: 065
  8. CERTOLIZUMAB [Suspect]
     Active Substance: CERTOLIZUMAB
     Indication: MALIGNANT MELANOMA
     Dosage: 400 MILLIGRAM
     Route: 058
     Dates: start: 20210428
  9. KALEORID [Concomitant]
     Active Substance: POTASSIUM CHLORIDE
     Indication: HYPOKALAEMIA
     Dosage: 600 MILLIGRAM, QD
     Route: 065

REACTIONS (1)
  - Gastrointestinal toxicity [Not Recovered/Not Resolved]

NARRATIVE: CASE EVENT DATE: 20210613
